FAERS Safety Report 9016882 (Version 1)
Quarter: 2013Q1

REPORT INFORMATION
  Report Type: Spontaneous
  Country: US (occurrence: None)
  Receive Date: 20130116
  Receipt Date: 20130116
  Transmission Date: 20140127
  Serious: No
  Sender: FDA-Public Use
  Company Number: US-HORIZON-DUE-0008-2012

PATIENT
  Sex: Male

DRUGS (1)
  1. DUEXIS [Suspect]
     Dosage: 800MG/26.6 MG

REACTIONS (1)
  - Limb injury [None]
